FAERS Safety Report 18324996 (Version 4)
Quarter: 2021Q3

REPORT INFORMATION
  Report Type: Spontaneous
  Country: US (occurrence: US)
  Receive Date: 20200928
  Receipt Date: 20210820
  Transmission Date: 20211014
  Serious: Yes (Other)
  Sender: FDA-Public Use
  Company Number: US-AMGEN-USASP2020155088

PATIENT
  Age: 63 Year
  Sex: Female

DRUGS (4)
  1. VITAMIN D3 [Concomitant]
     Active Substance: CHOLECALCIFEROL
  2. CALCIUM [Concomitant]
     Active Substance: CALCIUM
     Dosage: 1200 MILLIGRAM
  3. PROLIA [Suspect]
     Active Substance: DENOSUMAB
     Indication: OSTEOPOROSIS POSTMENOPAUSAL
     Dosage: 60 MILLIGRAM, Q6MO
     Route: 058
     Dates: start: 2018
  4. INFLUENZA VACCINE [Concomitant]
     Active Substance: INFLUENZA VIRUS VACCINE

REACTIONS (8)
  - Exostosis [Unknown]
  - Musculoskeletal pain [Recovering/Resolving]
  - Blood parathyroid hormone increased [Unknown]
  - Blood glucose increased [Unknown]
  - Vitamin D decreased [Unknown]
  - Nephrolithiasis [Unknown]
  - Calcinosis [Unknown]
  - Constipation [Unknown]

NARRATIVE: CASE EVENT DATE: 2018
